FAERS Safety Report 8305319-X (Version None)
Quarter: 2012Q2

REPORT INFORMATION
  Report Type: 
  Country: None (occurrence: None)
  Receive Date: 20120423
  Receipt Date: 20120416
  Transmission Date: 20120825
  Serious: No
  Sender: FDA-Public Use
  Company Number: US-PFIZER INC-2012075231

PATIENT
  Sex: Female
  Weight: 85.714 kg

DRUGS (17)
  1. PRISTIQ [Suspect]
     Indication: ANXIETY
     Dosage: 50 MG, 1X/DAY
     Route: 048
     Dates: start: 20110801, end: 20120101
  2. ERGOCALCIFEROL [Concomitant]
     Dosage: 1.25 MG, EVERY WEEK
     Route: 048
  3. CLINDAMYCIN [Concomitant]
     Dosage: 150 MG, EVERY 6 HOURS
     Route: 048
  4. PRISTIQ [Suspect]
     Indication: DEPRESSION
     Dosage: 50 MG, 1X/DAY
     Dates: start: 20120305
  5. ASTELIN [Concomitant]
     Dosage: 137MCG/INH 2 SPRAYS NASAL, 2X/DAY
  6. VALIUM [Concomitant]
     Dosage: 10 MG, 3X/DAY
     Route: 048
  7. PERCOCET [Concomitant]
     Dosage: 10/325 MG, UNK
  8. EPIPEN [Concomitant]
     Dosage: 1 PEN, UNK
     Route: 030
  9. THYROID TAB [Concomitant]
     Indication: HYPOTHYROIDISM
     Dosage: 90 MG, 2X/DAY
     Route: 048
  10. DUONEB [Concomitant]
     Dosage: 0.5MG - 2.5MG/3ML, 4X/DAY
  11. ZOFRAN [Concomitant]
     Dosage: 4 MG, EVERY 8 HOURS
     Route: 048
  12. SIMVASTATIN [Concomitant]
     Dosage: 20 MG, EVERY NIGHT
     Route: 048
  13. TERBINAFINE [Concomitant]
     Dosage: 250 MG, DAILY
     Route: 048
  14. CIPROFLOXACIN [Concomitant]
     Dosage: 250 MG, EVERY 12 HOURS
     Route: 048
  15. NEURONTIN [Concomitant]
     Dosage: 100 MG, 2X/DAY
     Route: 048
  16. BENTYL [Concomitant]
     Dosage: 10 MG, 4X/DAY
     Route: 048
  17. ONDANSETRON [Concomitant]
     Dosage: 4 MG, 3X/DAY
     Route: 048

REACTIONS (5)
  - DEPRESSION [None]
  - EYE PRURITUS [None]
  - HYPERSOMNIA [None]
  - SNEEZING [None]
  - HYPERSENSITIVITY [None]
